FAERS Safety Report 4818854-3 (Version None)
Quarter: 2005Q4

REPORT INFORMATION
  Report Type: 
  Country: None (occurrence: None)
  Receive Date: 20051101
  Receipt Date: 20051021
  Transmission Date: 20060501
  Serious: Yes (Hospitalization, Other)
  Sender: FDA-Public Use
  Company Number: KII-2005-0019233

PATIENT
  Age: 45 Year
  Sex: Male

DRUGS (3)
  1. OXYCONTIN [Suspect]
     Dosage: ORAL
     Route: 048
  2. COCAINE(COCAINE) [Suspect]
     Indication: INTENTIONAL DRUG MISUSE
  3. TETRAHYDROCANNABINOL(TETRAHYDROCANNABINOL) [Suspect]
     Indication: INTENTIONAL DRUG MISUSE

REACTIONS (5)
  - AGITATION [None]
  - BLOOD PRESSURE DECREASED [None]
  - COMA [None]
  - OVERDOSE [None]
  - POLYSUBSTANCE ABUSE [None]
